FAERS Safety Report 6304848-8 (Version None)
Quarter: 2009Q3

REPORT INFORMATION
  Report Type: 
  Country: None (occurrence: None)
  Receive Date: 20090806
  Receipt Date: 20090722
  Transmission Date: 20100115
  Serious: Yes (Life-Threatening, Hospitalization, Other)
  Sender: FDA-Public Use
  Company Number: 2008BI018538

PATIENT
  Age: 62 Year
  Sex: Female

DRUGS (6)
  1. ZEVALIN [Suspect]
     Indication: B-CELL LYMPHOMA
     Dosage: 906 MBQ; 1X; IV
     Route: 042
     Dates: start: 20080625, end: 20080625
  2. MABTHERA [Concomitant]
  3. CARMUSTINE [Concomitant]
  4. ARACYTINE [Concomitant]
  5. ETOPOSIDE [Concomitant]
  6. ALKERAN [Concomitant]

REACTIONS (26)
  - ACUTE INTERSTITIAL PNEUMONITIS [None]
  - ACUTE RESPIRATORY DISTRESS SYNDROME [None]
  - APLASIA [None]
  - BLOOD CREATINE PHOSPHOKINASE INCREASED [None]
  - BLOOD CULTURE POSITIVE [None]
  - BONE MARROW TRANSPLANT [None]
  - CARDIAC FLUTTER [None]
  - CONJUNCTIVAL HAEMORRHAGE [None]
  - DEPRESSION [None]
  - DIABETES MELLITUS [None]
  - DIARRHOEA [None]
  - ENTEROCOCCAL INFECTION [None]
  - FLATULENCE [None]
  - HAEMORRHAGIC DISORDER [None]
  - HYPERNATRAEMIA [None]
  - HYPOKALAEMIA [None]
  - HYPOTENSION [None]
  - ILEUS PARALYTIC [None]
  - MUCOSAL INFLAMMATION [None]
  - PLEURAL DISORDER [None]
  - RENAL FAILURE ACUTE [None]
  - RESPIRATORY FAILURE [None]
  - STAPHYLOCOCCAL INFECTION [None]
  - TACHYARRHYTHMIA [None]
  - THROMBOCYTOPENIA [None]
  - TROPONIN INCREASED [None]
